FAERS Safety Report 14638019 (Version 1)
Quarter: 2018Q1

REPORT INFORMATION
  Report Type: Spontaneous
  Country: US (occurrence: US)
  Receive Date: 20180314
  Receipt Date: 20180314
  Transmission Date: 20180509
  Serious: No
  Sender: FDA-Public Use
  Company Number: US-VYERA PHARMACEUTICALS, LLC-2017VYE00045

PATIENT
  Age: 56 Year
  Sex: Male

DRUGS (5)
  1. SULFADIAZINE. [Concomitant]
     Active Substance: SULFADIAZINE
  2. TRIUMEQ [Concomitant]
     Active Substance: ABACAVIR SULFATE\DOLUTEGRAVIR SODIUM\LAMIVUDINE
  3. ASPIRIN. [Concomitant]
     Active Substance: ASPIRIN
  4. DARAPRIM [Suspect]
     Active Substance: PYRIMETHAMINE
     Indication: TOXOPLASMOSIS
     Dosage: 25 MG, 1X/DAY
     Route: 048
     Dates: start: 201703
  5. SULFAPYRIDINE. [Concomitant]
     Active Substance: SULFAPYRIDINE

REACTIONS (1)
  - Decreased appetite [Not Recovered/Not Resolved]

NARRATIVE: CASE EVENT DATE: 20170904
